FAERS Safety Report 9235871 (Version 1)
Quarter: 2013Q2

REPORT INFORMATION
  Report Type: Spontaneous
  Country: KR (occurrence: KR)
  Receive Date: 20130417
  Receipt Date: 20130417
  Transmission Date: 20140414
  Serious: Yes (Hospitalization)
  Sender: FDA-Public Use
  Company Number: KR-ASTELLAS-2013JP004918

PATIENT
  Sex: Male

DRUGS (2)
  1. PROGRAF [Suspect]
     Dosage: 1 MG, UNKNOWN/D
     Route: 048
  2. PROGRAF [Suspect]
     Dosage: 0.5 MG, UNKNOWN/D
     Route: 048

REACTIONS (1)
  - Hospitalisation [Recovered/Resolved]
